FAERS Safety Report 5832881-9 (Version None)
Quarter: 2008Q3

REPORT INFORMATION
  Report Type: 
  Country: None (occurrence: None)
  Receive Date: 20080804
  Receipt Date: 20080720
  Transmission Date: 20090109
  Serious: Yes (Life-Threatening, Hospitalization)
  Sender: FDA-Public Use
  Company Number: GB-GENENTECH-254837

PATIENT
  Sex: Female
  Weight: 56 kg

DRUGS (9)
  1. BEVACIZUMAB [Suspect]
     Indication: BREAST CANCER METASTATIC
     Dosage: 15 MG/KG, Q3W
     Route: 042
     Dates: start: 20060629
  2. DOCETAXEL [Suspect]
     Indication: BREAST CANCER METASTATIC
     Dosage: 150 MG, Q3W
     Route: 042
     Dates: start: 20060629
  3. DOCETAXEL [Suspect]
     Dosage: 110 MG, UNK
     Dates: start: 20060831
  4. DOCETAXEL [Suspect]
     Dosage: 90 MG, UNK
     Dates: start: 20060922
  5. CAPECITABINE [Suspect]
     Indication: BREAST CANCER METASTATIC
     Dosage: 1400 MG, BID
     Route: 048
     Dates: start: 20070809
  6. IBANDRONATE [Concomitant]
     Indication: DRUG USE FOR UNKNOWN INDICATION
     Dates: start: 20060415
  7. CITALOPRAM HYDROBROMIDE [Concomitant]
     Indication: DRUG USE FOR UNKNOWN INDICATION
     Dosage: UNK, UNK
     Dates: start: 20050615
  8. ZOPICLONE [Concomitant]
     Indication: DRUG USE FOR UNKNOWN INDICATION
     Dates: start: 20051015
  9. DIAZEPAM [Concomitant]
     Indication: DRUG USE FOR UNKNOWN INDICATION
     Dates: start: 20050615

REACTIONS (1)
  - PYREXIA [None]
